FAERS Safety Report 11166164 (Version 4)
Quarter: 2015Q3

REPORT INFORMATION
  Report Type: Report from Study
  Country: JM (occurrence: JM)
  Receive Date: 20150605
  Receipt Date: 20150702
  Transmission Date: 20151125
  Serious: Yes (Hospitalization, Other)
  Sender: FDA-Public Use
  Company Number: PHHY2015JM066914

PATIENT
  Sex: Male
  Weight: 66 kg

DRUGS (4)
  1. ALLOPURINOL. [Concomitant]
     Active Substance: ALLOPURINOL
     Indication: PRODUCT USED FOR UNKNOWN INDICATION
     Route: 065
  2. FERROUS SULFATE [Concomitant]
     Active Substance: FERROUS SULFATE\FERROUS SULFATE, DRIED
     Indication: PRODUCT USED FOR UNKNOWN INDICATION
     Route: 065
  3. RANITIDINE [Concomitant]
     Active Substance: RANITIDINE\RANITIDINE HYDROCHLORIDE
     Indication: PRODUCT USED FOR UNKNOWN INDICATION
     Route: 065
  4. GLIVEC [Suspect]
     Active Substance: IMATINIB MESYLATE
     Indication: GASTROINTESTINAL STROMAL TUMOUR
     Dosage: 400 MG, UNK
     Route: 065
     Dates: start: 201302, end: 201503

REACTIONS (12)
  - No therapeutic response [Unknown]
  - Gastrointestinal stromal tumour [Unknown]
  - Ascites [Unknown]
  - Asthenia [Unknown]
  - Non-cardiac chest pain [Unknown]
  - Hepatomegaly [Unknown]
  - Malignant neoplasm progression [Unknown]
  - Fatigue [Unknown]
  - Metastases to liver [Unknown]
  - Anaemia of malignant disease [Unknown]
  - Drug resistance [Unknown]
  - Nausea [Unknown]

NARRATIVE: CASE EVENT DATE: 2014
